FAERS Safety Report 9423684 (Version 2)
Quarter: 2014Q1

REPORT INFORMATION
  Report Type: Spontaneous
  Country: BR (occurrence: BR)
  Receive Date: 20130727
  Receipt Date: 20140122
  Transmission Date: 20141002
  Serious: Yes (Other)
  Sender: FDA-Public Use
  Company Number: BR-AMGEN-BRASP2013045649

PATIENT
  Age: 49 Year
  Sex: Female
  Weight: 50 kg

DRUGS (2)
  1. ENBREL [Suspect]
     Indication: RHEUMATOID ARTHRITIS
     Dosage: 50 MG, QWK
     Route: 058
     Dates: start: 201304, end: 201304
  2. NIMESULIDE [Concomitant]
     Indication: PAIN
     Dosage: UNSPECIFIED DOSE, AS NEEDED

REACTIONS (8)
  - Pharyngeal haemorrhage [Unknown]
  - Pain [Unknown]
  - Arthralgia [Unknown]
  - Muscular weakness [Unknown]
  - Throat lesion [Not Recovered/Not Resolved]
  - Hypersensitivity [Unknown]
  - Bedridden [Recovered/Resolved]
  - Limb injury [Recovered/Resolved]
